FAERS Safety Report 4995695-8 (Version None)
Quarter: 2006Q2

REPORT INFORMATION
  Report Type: 
  Country: None (occurrence: None)
  Receive Date: 20060508
  Receipt Date: 20060426
  Transmission Date: 20061013
  Serious: Yes (Hospitalization)
  Sender: FDA-Public Use
  Company Number: PL-BRISTOL-MYERS SQUIBB COMPANY-13358171

PATIENT
  Age: 73 Year
  Sex: Female
  Weight: 45 kg

DRUGS (4)
  1. CISPLATIN [Suspect]
     Indication: LUNG NEOPLASM MALIGNANT
     Route: 042
     Dates: start: 20060405, end: 20060405
  2. GEMCITABINE [Suspect]
     Indication: LUNG NEOPLASM MALIGNANT
     Route: 042
     Dates: start: 20060405, end: 20060405
  3. KETOPROFEN [Concomitant]
     Route: 048
     Dates: start: 20060301, end: 20060412
  4. ONDANSETRON HCL [Concomitant]
     Route: 048
     Dates: start: 20060405, end: 20060410

REACTIONS (6)
  - CANCER PAIN [None]
  - FATIGUE [None]
  - HAEMOPTYSIS [None]
  - HYPOKALAEMIA [None]
  - HYPONATRAEMIA [None]
  - VOMITING [None]
